FAERS Safety Report 7970167-7 (Version None)
Quarter: 2011Q4

REPORT INFORMATION
  Report Type: 
  Country: None (occurrence: None)
  Receive Date: 20111212
  Receipt Date: 20111205
  Transmission Date: 20120403
  Serious: Yes (Death)
  Sender: FDA-Public Use
  Company Number: US-ASTELLAS-2011US008161

PATIENT
  Sex: Male

DRUGS (1)
  1. PROGRAF [Suspect]
     Indication: TRANSPLANT
     Dosage: 2 MG, BID
     Route: 048
     Dates: start: 20110404, end: 20111001

REACTIONS (1)
  - DEATH [None]
